FAERS Safety Report 5645157-X (Version None)
Quarter: 2008Q1

REPORT INFORMATION
  Report Type: 
  Country: None (occurrence: None)
  Receive Date: 20080229
  Receipt Date: 20080215
  Transmission Date: 20080703
  Serious: Yes (Other)
  Sender: FDA-Public Use
  Company Number: US-BAYER-200714404BWH

PATIENT
  Sex: Female

DRUGS (3)
  1. AVELOX [Suspect]
     Indication: NASAL OPERATION
     Dosage: TOTAL DAILY DOSE: 400 MG  UNIT DOSE: 400 MG
     Route: 048
     Dates: start: 20071001, end: 20071001
  2. ADVIL [Concomitant]
  3. LYRICA [Concomitant]

REACTIONS (6)
  - ANAPHYLACTIC REACTION [None]
  - DYSPNOEA [None]
  - FEELING ABNORMAL [None]
  - MENTAL DISORDER [None]
  - PANIC REACTION [None]
  - URINARY TRACT INFECTION [None]
